FAERS Safety Report 12414921 (Version 1)
Quarter: 2016Q2

REPORT INFORMATION
  Report Type: Spontaneous
  Country: GB (occurrence: GB)
  Receive Date: 20160530
  Receipt Date: 20160530
  Transmission Date: 20160815
  Serious: Yes (Hospitalization)
  Sender: FDA-Public Use
  Company Number: GB-ASTRAZENECA-2016SE55431

PATIENT
  Age: 35 Year
  Sex: Male
  Weight: 95 kg

DRUGS (1)
  1. OMEPRAZOLE. [Suspect]
     Active Substance: OMEPRAZOLE
     Indication: ABDOMINAL PAIN UPPER
     Route: 048
     Dates: start: 20150728, end: 20150804

REACTIONS (7)
  - Anxiety [Not Recovered/Not Resolved]
  - Decreased interest [Recovered/Resolved with Sequelae]
  - Constipation [Not Recovered/Not Resolved]
  - Myalgia [Recovered/Resolved with Sequelae]
  - Migraine [Recovered/Resolved]
  - Bone pain [Recovered/Resolved with Sequelae]
  - Dizziness [Recovered/Resolved with Sequelae]

NARRATIVE: CASE EVENT DATE: 20150731
